FAERS Safety Report 12613280 (Version 1)
Quarter: 2016Q3

REPORT INFORMATION
  Report Type: Spontaneous
  Country: US (occurrence: None)
  Receive Date: 20160801
  Receipt Date: 20160801
  Transmission Date: 20161109
  Serious: Yes (Death)
  Sender: FDA-Public Use
  Company Number: None

PATIENT
  Age: 42 Year
  Sex: Male
  Weight: 81.65 kg

DRUGS (1)
  1. CHANTIX [Suspect]
     Active Substance: VARENICLINE TARTRATE
     Indication: EX-TOBACCO USER
     Dosage: IN THE MORNING --
     Dates: start: 20160602, end: 20160724

REACTIONS (4)
  - Mood swings [None]
  - Anxiety [None]
  - Emotional disorder [None]
  - Depression [None]

NARRATIVE: CASE EVENT DATE: 20160701
